FAERS Safety Report 12779789 (Version 1)
Quarter: 2016Q3

REPORT INFORMATION
  Report Type: Spontaneous
  Country: US (occurrence: US)
  Receive Date: 20160925
  Receipt Date: 20160925
  Transmission Date: 20161109
  Serious: Yes (Other)
  Sender: FDA-Public Use
  Company Number: None

PATIENT
  Age: 19 Year
  Sex: Female
  Weight: 63 kg

DRUGS (6)
  1. EFFEXOR [Concomitant]
     Active Substance: VENLAFAXINE HYDROCHLORIDE
  2. HYOSCYAMINE SULFATE. [Suspect]
     Active Substance: HYOSCYAMINE SULFATE
     Indication: GASTROINTESTINAL DISORDER
     Route: 048
  3. HYOSCYAMINE SULFATE. [Suspect]
     Active Substance: HYOSCYAMINE SULFATE
     Indication: POSTOPERATIVE CARE
     Route: 048
  4. ISOMETH [Concomitant]
  5. QUETAPINE [Concomitant]
     Active Substance: QUETIAPINE
  6. RECLIPSEN [Concomitant]
     Active Substance: DESOGESTREL\ETHINYL ESTRADIOL

REACTIONS (7)
  - Heart rate increased [None]
  - Confusional state [None]
  - Asthenia [None]
  - Fall [None]
  - Head injury [None]
  - Dizziness [None]
  - Urinary retention [None]

NARRATIVE: CASE EVENT DATE: 20160901
